FAERS Safety Report 12700524 (Version 3)
Quarter: 2016Q4

REPORT INFORMATION
  Report Type: Spontaneous
  Country: US (occurrence: US)
  Receive Date: 20160830
  Receipt Date: 20161025
  Transmission Date: 20170207
  Serious: Yes (Death, Life-Threatening, Hospitalization)
  Sender: FDA-Public Use
  Company Number: US-BAUSCH-BL-2016-020365

PATIENT
  Age: 71 Year
  Sex: Male
  Weight: 97.61 kg

DRUGS (2)
  1. XIFAXAN [Suspect]
     Active Substance: RIFAXIMIN
     Indication: HEPATIC CIRRHOSIS
     Route: 065
     Dates: start: 20150201, end: 20160720
  2. XIFAXAN [Suspect]
     Active Substance: RIFAXIMIN
     Route: 065
     Dates: start: 2016

REACTIONS (4)
  - Encephalopathy [Unknown]
  - Hepatic failure [Fatal]
  - Ammonia increased [Unknown]
  - Somnolence [Unknown]

NARRATIVE: CASE EVENT DATE: 201606
